FAERS Safety Report 4373170-1 (Version None)
Quarter: 2004Q2

REPORT INFORMATION
  Report Type: 
  Country: None (occurrence: None)
  Receive Date: 20040603
  Receipt Date: 20040521
  Transmission Date: 20050107
  Serious: No
  Sender: FDA-Public Use
  Company Number: USA030229610

PATIENT
  Age: 85 Year
  Sex: Female

DRUGS (4)
  1. ZYPREXA [Suspect]
     Indication: AGITATION
     Dates: start: 20030127, end: 20030401
  2. ZYPREXA [Suspect]
     Indication: CRYING
     Dates: start: 20030127, end: 20030401
  3. GLUCOTROL [Concomitant]
  4. INSULIN [Concomitant]

REACTIONS (15)
  - AGITATION [None]
  - BLOOD GLUCOSE INCREASED [None]
  - CARDIAC ARREST [None]
  - CONFUSIONAL STATE [None]
  - CRYING [None]
  - DEHYDRATION [None]
  - DIET REFUSAL [None]
  - DRUG INEFFECTIVE [None]
  - FAILURE TO THRIVE [None]
  - GENERAL PHYSICAL HEALTH DETERIORATION [None]
  - MALNUTRITION [None]
  - MULTI-ORGAN FAILURE [None]
  - RESPIRATORY ARREST [None]
  - SPEECH DISORDER [None]
  - TREATMENT NONCOMPLIANCE [None]
